FAERS Safety Report 8082280-7 (Version None)
Quarter: 2012Q1

REPORT INFORMATION
  Report Type: 
  Country: None (occurrence: None)
  Receive Date: 20120127
  Receipt Date: 20110216
  Transmission Date: 20120608
  Serious: No
  Sender: FDA-Public Use
  Company Number: US-ABBOTT-11P-163-0705478-00

PATIENT
  Sex: Male
  Weight: 113.5 kg

DRUGS (3)
  1. PERCOCET [Concomitant]
     Indication: PAIN MANAGEMENT
     Dosage: 500/ 325MG
  2. HUMIRA [Suspect]
     Indication: RHEUMATOID ARTHRITIS
  3. HUMIRA [Suspect]
     Indication: CROHN'S DISEASE
     Dates: start: 20101001

REACTIONS (3)
  - COLD SWEAT [None]
  - INJECTION SITE PAIN [None]
  - INJECTION SITE HAEMORRHAGE [None]
